FAERS Safety Report 16975958 (Version 2)
Quarter: 2019Q4

REPORT INFORMATION
  Report Type: Report from Study
  Country: US (occurrence: US)
  Receive Date: 20191030
  Receipt Date: 20191115
  Transmission Date: 20200122
  Serious: Yes (Death)
  Sender: FDA-Public Use
  Company Number: US-BAUSCH-BL-2019-058910

PATIENT
  Sex: Male
  Weight: 85.35 kg

DRUGS (1)
  1. SILIQ [Suspect]
     Active Substance: BRODALUMAB
     Indication: PSORIASIS
     Dosage: AS DIRECTED (1 SHOT )
     Route: 058
     Dates: start: 20190411

REACTIONS (3)
  - Ill-defined disorder [Unknown]
  - Disease complication [Fatal]
  - Malaise [Fatal]
